FAERS Safety Report 6631408-1 (Version None)
Quarter: 2010Q1

REPORT INFORMATION
  Report Type: 
  Country: None (occurrence: None)
  Receive Date: 20100312
  Receipt Date: 20100304
  Transmission Date: 20100710
  Serious: Yes (Other)
  Sender: FDA-Public Use
  Company Number: US-JNJFOC-20091008973

PATIENT
  Sex: Female
  Weight: 90.72 kg

DRUGS (9)
  1. LEVAQUIN [Suspect]
     Indication: PNEUMONIA
     Route: 048
  2. LEVAQUIN [Suspect]
     Route: 048
  3. TUSSIONEX [Concomitant]
     Indication: COUGH
     Route: 048
  4. SYNTHROID [Concomitant]
     Indication: THYROID DISORDER
     Route: 065
  5. ATENOLOL [Concomitant]
     Indication: BLOOD PRESSURE
     Route: 065
  6. DIOVAN [Concomitant]
     Route: 065
  7. ALEVE (CAPLET) [Concomitant]
     Route: 048
  8. VITAMIN TAB [Concomitant]
     Route: 065
  9. MUCINEX DM [Concomitant]
     Indication: COUGH
     Route: 065

REACTIONS (13)
  - ANXIETY [None]
  - CONSTIPATION [None]
  - DRUG HYPERSENSITIVITY [None]
  - EPIGASTRIC DISCOMFORT [None]
  - FAECES DISCOLOURED [None]
  - FATIGUE [None]
  - INFLUENZA [None]
  - MOVEMENT DISORDER [None]
  - MUSCULOSKELETAL PAIN [None]
  - PAIN IN EXTREMITY [None]
  - PANIC ATTACK [None]
  - ROTATOR CUFF SYNDROME [None]
  - SUBCUTANEOUS ABSCESS [None]
